FAERS Safety Report 9221691 (Version 1)
Quarter: 2013Q1

REPORT INFORMATION
  Report Type: Spontaneous
  Country: US (occurrence: None)
  Receive Date: 20120831
  Receipt Date: 20120831
  Transmission Date: 20140127
  Serious: No
  Sender: FDA-Public Use
  Company Number: 1000029992

PATIENT
  Age: 72 Year
  Sex: Male

DRUGS (18)
  1. DALIRESP [Suspect]
     Indication: CHRONIC OBSTRUCTIVE PULMONARY DISEASE
     Route: 048
     Dates: start: 20120419
  2. ALBUTEROL (ALBUTEROL) (ALBUTEROL) [Concomitant]
  3. CELEBREX (CELECOXIB ) (CELECOXIB) [Concomitant]
  4. HYDROCODONE (HYDROCODONE) (HYDROCODONE) [Concomitant]
  5. SPIRIVA (TIOPROPIUM BROMIDE) (TIOTROPIUM BROMIDE) [Concomitant]
  6. ADVAIR (SERETIDE (SERETIDE) [Concomitant]
  7. GLUCOPHAGE (METFORMIN HYDROCHLORIDE) (METFORMIN HYDROCHLORIDE) [Concomitant]
  8. ASPIRIN (ACETYLSALICYLIC ACID) (ACETYLSALICYLIC ACID) [Concomitant]
  9. CARDIZEM (DILTIAZEM) (DILTIAZEM) [Concomitant]
  10. PRADAXA (DABIGATRAN ETEXILATE MESILATE) (DABIGATRAN ETEXILATE MESILATE) [Concomitant]
  11. PRAVASTATIN (PRAVASTATIN) (RRAVASTATIN) [Concomitant]
  12. PREDNISONE (PREDNISONE) (PREDNISONE) [Concomitant]
  13. LEVOTHYROXINE (LEVOTHYROXINE SODIUM) (LEVOTHYROXINE SODIUM) [Concomitant]
  14. REQUIP (ROPINIROLE HYDROCHLORIDE) (ROPINIROLE HYDROCHLORIDE) [Concomitant]
  15. LASIX (FUROSEMIDE) (FUROSEMIDE) [Concomitant]
  16. K-DUR (POTASSIUM CHLORIDE) (POTASSIUM CHLORIDE) [Concomitant]
  17. VITAMIN D (VITAMIN D) (VITAMIN D) [Concomitant]
  18. OXYGEN (OXYGEN) (OXYGEN) [Concomitant]

REACTIONS (2)
  - Weight decreased [None]
  - Increased bronchial secretion [None]
